FAERS Safety Report 8843605 (Version 1)
Quarter: 2012Q4

REPORT INFORMATION
  Report Type: 
  Country: US (occurrence: US)
  Receive Date: 20121016
  Receipt Date: 20121016
  Transmission Date: 20130627
  Serious: Yes (Other)
  Sender: FDA-Public Use
  Company Number: US-ROCHE-1140495

PATIENT
  Weight: 60.5 kg

DRUGS (9)
  1. NUTROPIN AQ [Suspect]
     Indication: AZOTAEMIA
     Dosage: 0.5 cc
     Route: 058
  2. NUTROPIN AQ [Suspect]
     Indication: AZOTAEMIA
  3. PREDNISONE [Concomitant]
     Route: 065
  4. NEORAL [Concomitant]
     Route: 065
  5. IMURAN [Concomitant]
     Route: 048
  6. NORVASC [Concomitant]
     Route: 048
  7. SODIUM BICARBONATE [Concomitant]
     Route: 048
  8. DITROPAN [Concomitant]
     Route: 065
  9. FERROUS SULFATE [Concomitant]
     Route: 065

REACTIONS (3)
  - Pyuria [Unknown]
  - Bacteriuria [Unknown]
  - Drug dose omission [Unknown]
